FAERS Safety Report 9958366 (Version 2)
Quarter: 2015Q4

REPORT INFORMATION
  Report Type: Report from Study
  Country: US (occurrence: US)
  Receive Date: 20140305
  Receipt Date: 20151127
  Transmission Date: 20160305
  Serious: Yes (Other)
  Sender: FDA-Public Use
  Company Number: US-ROCHE-1347411

PATIENT
  Age: 72 Year
  Sex: Female

DRUGS (17)
  1. LUCENTIS [Suspect]
     Active Substance: RANIBIZUMAB
     Indication: NEOVASCULAR AGE-RELATED MACULAR DEGENERATION
     Route: 050
  2. LUMIGAN [Concomitant]
     Active Substance: BIMATOPROST
     Dosage: 1 GTT EVERY MORNING OD
     Route: 065
  3. LUCENTIS [Suspect]
     Active Substance: RANIBIZUMAB
     Indication: DIABETIC RETINAL OEDEMA
  4. COSOPT [Concomitant]
     Active Substance: DORZOLAMIDE HYDROCHLORIDE\TIMOLOL MALEATE
     Dosage: 1 GTT TWICE A DAY OU
     Route: 065
  5. ASPIRIN. [Concomitant]
     Active Substance: ASPIRIN
     Route: 065
  6. AVASTIN [Suspect]
     Active Substance: BEVACIZUMAB
     Indication: PRODUCT USED FOR UNKNOWN INDICATION
     Route: 065
  7. PROCRIT [Concomitant]
     Active Substance: ERYTHROPOIETIN
     Route: 065
  8. AMARYL [Concomitant]
     Active Substance: GLIMEPIRIDE
  9. PROPARACAINE [Concomitant]
     Active Substance: PROPARACAINE
     Route: 065
  10. VIGAMOX [Concomitant]
     Active Substance: MOXIFLOXACIN HYDROCHLORIDE
     Dosage: 1 GTT PRN OS TID 3 DAYS BEFORE AND 3 DAYS AFTER IN
     Route: 065
  11. REGLAN [Concomitant]
     Active Substance: METOCLOPRAMIDE HYDROCHLORIDE
  12. BETADINE [Concomitant]
     Active Substance: POVIDONE-IODINE
     Route: 065
  13. ALPHAGAN P [Concomitant]
     Active Substance: BRIMONIDINE TARTRATE
     Dosage: 1 GTT TID OU
     Route: 065
  14. LUCENTIS [Suspect]
     Active Substance: RANIBIZUMAB
     Indication: DIABETIC RETINOPATHY
     Route: 050
     Dates: start: 20090101
  15. LUCENTIS [Suspect]
     Active Substance: RANIBIZUMAB
     Indication: RETINAL OEDEMA
     Route: 050
     Dates: start: 20120424
  16. NEXIUM [Concomitant]
     Active Substance: ESOMEPRAZOLE MAGNESIUM
  17. FOLIC ACID. [Concomitant]
     Active Substance: FOLIC ACID

REACTIONS (11)
  - Vitreous detachment [Unknown]
  - Haemorrhage [Unknown]
  - Blepharitis [Unknown]
  - Prescribed overdose [Unknown]
  - Vision blurred [Unknown]
  - Blindness [Unknown]
  - Intraocular pressure increased [Unknown]
  - Open angle glaucoma [Unknown]
  - Visual impairment [Recovered/Resolved]
  - Vitreous floaters [Unknown]
  - Visual acuity reduced [Unknown]

NARRATIVE: CASE EVENT DATE: 20120501
